FAERS Safety Report 8354521-X (Version None)
Quarter: 2012Q2

REPORT INFORMATION
  Report Type: 
  Country: None (occurrence: None)
  Receive Date: 20120511
  Receipt Date: 20120511
  Transmission Date: 20120825
  Serious: Yes (Death, Other)
  Sender: FDA-Public Use
  Company Number: JP-JNJFOC-20120508688

PATIENT
  Age: 9 Decade
  Sex: Male

DRUGS (2)
  1. RISPERDAL [Suspect]
     Indication: RESTLESSNESS
     Dosage: 1.5 MG PER DAY, 3 TIMES DAILY AND A PROPER DOSE OF THE DRUG ON AN AS NEEDED BASIS
     Route: 048
  2. RISPERDAL [Suspect]
     Indication: AGITATION
     Dosage: 1.5 MG PER DAY, 3 TIMES DAILY AND A PROPER DOSE OF THE DRUG ON AN AS NEEDED BASIS
     Route: 048

REACTIONS (5)
  - ASPHYXIA [None]
  - SEDATION [None]
  - DYSPHAGIA [None]
  - ASPIRATION [None]
  - PARKINSONISM [None]
